FAERS Safety Report 5059840-0 (Version None)
Quarter: 2006Q3

REPORT INFORMATION
  Report Type: 
  Country: None (occurrence: None)
  Receive Date: 20060724
  Receipt Date: 20000503
  Transmission Date: 20061208
  Serious: Yes (Congenital Anomaly)
  Sender: FDA-Public Use
  Company Number: 00USA10610

PATIENT
  Age: 5 Month
  Sex: Female

DRUGS (2)
  1. PRENATAL [Concomitant]
     Route: 064
  2. LOTREL [Suspect]
     Route: 064
     Dates: start: 19990601, end: 19991001

REACTIONS (1)
  - MULTIPLE CONGENITAL ABNORMALITIES [None]
